FAERS Safety Report 13880296 (Version 1)
Quarter: 2017Q3

REPORT INFORMATION
  Report Type: Spontaneous
  Country: US (occurrence: US)
  Receive Date: 20170815
  Receipt Date: 20170815
  Transmission Date: 20171127
  Serious: Yes (Other)
  Sender: FDA-Public Use
  Company Number: None

PATIENT
  Sex: Female
  Weight: 78.75 kg

DRUGS (16)
  1. ASPIRIN. [Concomitant]
     Active Substance: ASPIRIN
  2. FENTANYL. [Concomitant]
     Active Substance: FENTANYL
  3. BUPIVACAINE. [Concomitant]
     Active Substance: BUPIVACAINE
  4. TIZANIDINE. [Concomitant]
     Active Substance: TIZANIDINE
  5. ROPINIROLE. [Concomitant]
     Active Substance: ROPINIROLE
  6. MIRALAX [Concomitant]
     Active Substance: POLYETHYLENE GLYCOL 3350
  7. ISOSORBIDE. [Concomitant]
     Active Substance: ISOSORBIDE
  8. VITAMIN B12 [Concomitant]
     Active Substance: CYANOCOBALAMIN
  9. HYDROCHLOROTHIAZIDE. [Concomitant]
     Active Substance: HYDROCHLOROTHIAZIDE
  10. ZETIA [Concomitant]
     Active Substance: EZETIMIBE
  11. TYLENOL [Concomitant]
     Active Substance: ACETAMINOPHEN
  12. METHOCARBAMOL. [Concomitant]
     Active Substance: METHOCARBAMOL
  13. METOPROLOL ER [Concomitant]
     Active Substance: METOPROLOL SUCCINATE
  14. TRAMADOL. [Concomitant]
     Active Substance: TRAMADOL
  15. TAMOXIFEN  20 MG [Suspect]
     Active Substance: TAMOXIFEN
     Indication: BREAST CANCER
     Dosage: ?          QUANTITY:1 TABLET(S);?
     Route: 048
     Dates: start: 20160414, end: 20170715
  16. POTASSIUM [Concomitant]
     Active Substance: POTASSIUM

REACTIONS (5)
  - Cataract [None]
  - Headache [None]
  - Blindness unilateral [None]
  - Eye inflammation [None]
  - Vitreous floaters [None]

NARRATIVE: CASE EVENT DATE: 20170713
